FAERS Safety Report 15186812 (Version 1)
Quarter: 2018Q3

REPORT INFORMATION
  Report Type: Report from Study
  Country: US (occurrence: US)
  Receive Date: 20180723
  Receipt Date: 20180723
  Transmission Date: 20181010
  Serious: No
  Sender: FDA-Public Use
  Company Number: US-EXELIXIS-CABO-18012047

PATIENT
  Sex: Male

DRUGS (1)
  1. CABOMETYX [Suspect]
     Active Substance: CABOZANTINIB S-MALATE
     Indication: RENAL CELL CARCINOMA
     Dosage: 60 MG, QD
     Route: 048
     Dates: start: 201710

REACTIONS (13)
  - Pulmonary mass [Unknown]
  - Dizziness [Unknown]
  - Diarrhoea [Unknown]
  - Pleural effusion [Unknown]
  - Back pain [Unknown]
  - Vitamin D deficiency [Unknown]
  - Abdominal pain [Unknown]
  - Fatigue [Unknown]
  - Hypertension [Unknown]
  - Cancer pain [Unknown]
  - Decreased appetite [Unknown]
  - Skin infection [Unknown]
  - Malignant neoplasm progression [Unknown]
